FAERS Safety Report 16910756 (Version 2)
Quarter: 2019Q4

REPORT INFORMATION
  Report Type: Spontaneous
  Country: US (occurrence: US)
  Receive Date: 20191012
  Receipt Date: 20191122
  Transmission Date: 20200122
  Serious: Yes (Other)
  Sender: FDA-Public Use
  Company Number: US-ASTRAZENECA-2019SF41485

PATIENT
  Sex: Female

DRUGS (1)
  1. IMFINZI [Suspect]
     Active Substance: DURVALUMAB
     Indication: LUNG NEOPLASM MALIGNANT
     Dosage: 620.0MG UNKNOWN
     Route: 042
     Dates: start: 20190914, end: 20190926

REACTIONS (2)
  - Polymyalgia rheumatica [Recovering/Resolving]
  - Arthralgia [Unknown]
